FAERS Safety Report 23966076 (Version 1)
Quarter: 2024Q2

REPORT INFORMATION
  Report Type: Spontaneous
  Country: GB (occurrence: GB)
  Receive Date: 20240612
  Receipt Date: 20240612
  Transmission Date: 20240716
  Serious: Yes (Other)
  Sender: FDA-Public Use
  Company Number: GB-MHRA-TPP52409044C9043410YC1718023191823

PATIENT
  Age: 37 Year
  Sex: Female
  Weight: 52 kg

DRUGS (12)
  1. MEDROXYPROGESTERONE ACETATE [Suspect]
     Active Substance: MEDROXYPROGESTERONE ACETATE
     Dosage: 5 MG
     Dates: start: 20240416
  2. LANOLIN\LIGHT MINERAL OIL\PARAFFIN [Concomitant]
     Active Substance: LANOLIN\LIGHT MINERAL OIL\PARAFFIN
     Dosage: APPLY TO SKIN FREQUENTLY AND LIBERALLY, AS OFTEN AS REQUIRED
     Dates: start: 20240513, end: 20240610
  3. FEXOFENADINE [Concomitant]
     Active Substance: FEXOFENADINE HYDROCHLORIDE
     Dosage: TAKE ONE DAILY
     Dates: start: 20240419, end: 20240519
  4. ZOPICLONE [Concomitant]
     Active Substance: ZOPICLONE
     Dosage: AT NIGHT
     Dates: start: 20240513, end: 20240520
  5. ACETAMINOPHEN [Concomitant]
     Active Substance: ACETAMINOPHEN
     Dosage: TAKE ONE OR TWO TABLETS EVERY 4 TO 6 HOURS WHEN...
     Dates: start: 20240513, end: 20240610
  6. PREDNISOLONE [Concomitant]
     Active Substance: PREDNISOLONE
     Dosage: 6 DF, 1X/DAY
     Dates: start: 20240513, end: 20240519
  7. CODEINE PHOSPHATE [Concomitant]
     Active Substance: CODEINE PHOSPHATE
     Dosage: TAKE ONE-TWO UP TO 4 TIMES/DAY
     Dates: start: 20240531, end: 20240607
  8. CLOBETASOL [Concomitant]
     Active Substance: CLOBETASOL
     Dosage: APPLY 1-2 TIMES/DAY FOR 2 WEEKS
     Dates: start: 20231227, end: 20240513
  9. ISOPROPYL MYRISTATE\MINERAL OIL [Concomitant]
     Active Substance: ISOPROPYL MYRISTATE\MINERAL OIL
     Dosage: APPLY TO SKIN FREQUENTLY AND LIBERALLY AS OFTEN...
     Dates: start: 20231227
  10. FLUOXETINE [Concomitant]
     Active Substance: FLUOXETINE HYDROCHLORIDE
     Dosage: 1 DF, 1X/DAY
     Dates: start: 20240216
  11. DERMOL [BENZALKONIUM CHLORIDE;CHLORHEXIDINE HYDROCHLORIDE;ISOPROPYL MY [Concomitant]
     Dosage: USE AS DIRECTED
     Dates: start: 20240513
  12. HYDROMOL [EMULSIFYING WAX;PARAFFIN SOFT;PARAFFIN, LIQUID] [Concomitant]
     Dosage: FREQ:8 H;APPLY LIBERALLY
     Dates: start: 20240513

REACTIONS (2)
  - Contusion [Recovering/Resolving]
  - Burning sensation [Recovering/Resolving]

NARRATIVE: CASE EVENT DATE: 20240610
